FAERS Safety Report 20470980 (Version 1)
Quarter: 2022Q1

REPORT INFORMATION
  Report Type: Spontaneous
  Country: None (occurrence: US)
  Receive Date: 20220214
  Receipt Date: 20220214
  Transmission Date: 20220423
  Serious: No
  Sender: FDA-Public Use
  Company Number: US-Intersect Ent, Inc.-2125872

PATIENT
  Age: 44 Year
  Sex: Female

DRUGS (1)
  1. SINUVA [Suspect]
     Active Substance: MOMETASONE FUROATE
     Indication: Nasal polyps
     Route: 006
     Dates: start: 20210609

REACTIONS (3)
  - Dysphagia [None]
  - Nasal crusting [None]
  - Oropharyngeal pain [None]

NARRATIVE: CASE EVENT DATE: 20210701
